FAERS Safety Report 14159330 (Version 2)
Quarter: 2017Q4

REPORT INFORMATION
  Report Type: Spontaneous
  Country: US (occurrence: US)
  Receive Date: 20171106
  Receipt Date: 20171117
  Transmission Date: 20180321
  Serious: Yes (Death, Life-Threatening, Other)
  Sender: FDA-Public Use
  Company Number: US-DRREDDYS-USA/USA/17/0094310

PATIENT
  Age: 25 Year
  Sex: Male

DRUGS (3)
  1. FLUCONAZOLE. [Suspect]
     Active Substance: FLUCONAZOLE
     Indication: ANTIFUNGAL PROPHYLAXIS
     Route: 065
  2. MYCOPHENOLIC ACID. [Suspect]
     Active Substance: MYCOPHENOLIC ACID
     Indication: GRAFT VERSUS HOST DISEASE
     Route: 065
  3. METHYLPREDNISOLONE. [Suspect]
     Active Substance: METHYLPREDNISOLONE
     Indication: GRAFT VERSUS HOST DISEASE
     Route: 065

REACTIONS (9)
  - Scopulariopsis infection [Unknown]
  - Pneumonia [Fatal]
  - Hypotension [Unknown]
  - Acute kidney injury [Unknown]
  - Chronic graft versus host disease in skin [Unknown]
  - Bronchopulmonary aspergillosis [Fatal]
  - Respiratory failure [Fatal]
  - Chronic graft versus host disease in liver [Unknown]
  - Cytopenia [Unknown]
